FAERS Safety Report 8448125-8 (Version None)
Quarter: 2012Q2

REPORT INFORMATION
  Report Type: 
  Country: None (occurrence: None)
  Receive Date: 20120619
  Receipt Date: 20120605
  Transmission Date: 20120825
  Serious: Yes (Hospitalization, Disabling)
  Sender: FDA-Public Use
  Company Number: ES-CELGENEUS-144-50794-12031574

PATIENT
  Sex: Male
  Weight: 79 kg

DRUGS (4)
  1. VIDAZA [Suspect]
     Dosage: 100 MILLIGRAM
     Route: 065
     Dates: end: 20110620
  2. RED BLOOD CELLS [Concomitant]
     Dosage: 2 DOSAGE FORMS
     Route: 041
     Dates: start: 20111201, end: 20111201
  3. ASPIRIN [Concomitant]
     Route: 065
     Dates: end: 20111201
  4. RED BLOOD CELLS [Concomitant]
     Route: 041

REACTIONS (2)
  - HYDROCEPHALUS [None]
  - CEREBRAL INFARCTION [None]
